FAERS Safety Report 5584571-8 (Version None)
Quarter: 2008Q1

REPORT INFORMATION
  Report Type: 
  Country: None (occurrence: None)
  Receive Date: 20080108
  Receipt Date: 20080102
  Transmission Date: 20080703
  Serious: Yes (Hospitalization, Disabling)
  Sender: FDA-Public Use
  Company Number: US-SANOFI-SYNTHELABO-A03200703424

PATIENT
  Sex: Female
  Weight: 68 kg

DRUGS (2)
  1. AMBIEN [Suspect]
     Indication: INSOMNIA
     Dosage: 20 MG EVERY NIGHT AT LEAST 5 DAYS A WEEK
     Route: 048
     Dates: start: 20061030, end: 20070107
  2. TYLENOL [Concomitant]
     Indication: INSOMNIA
     Route: 048
     Dates: start: 20061030

REACTIONS (12)
  - AMNESIA [None]
  - BELLIGERENCE [None]
  - DEPRESSION [None]
  - DRUG ABUSE [None]
  - DRUG DEPENDENCE [None]
  - IMPAIRED DRIVING ABILITY [None]
  - IMPRISONMENT [None]
  - LOSS OF EMPLOYMENT [None]
  - SLEEP TALKING [None]
  - SOMNAMBULISM [None]
  - SUICIDAL IDEATION [None]
  - THERAPEUTIC RESPONSE PROLONGED [None]
